FAERS Safety Report 8879078 (Version 1)
Quarter: 2012Q4

REPORT INFORMATION
  Report Type: Spontaneous
  Country: US (occurrence: None)
  Receive Date: 20121031
  Receipt Date: 20121031
  Transmission Date: 20130627
  Serious: No
  Sender: FDA-Public Use
  Company Number: None

PATIENT
  Age: 88 Year
  Sex: Male
  Weight: 85.5 kg

DRUGS (3)
  1. ASPIRIN [Suspect]
     Indication: PROPHYLAXIS
     Route: 048
     Dates: start: 20090825, end: 20121016
  2. FISH OIL [Suspect]
     Indication: CARDIOVASCULAR DISORDER
     Route: 048
     Dates: start: 20090825, end: 20121016
  3. FISH OIL [Suspect]
     Indication: PROPHYLAXIS
     Route: 048
     Dates: start: 20090825, end: 20121016

REACTIONS (2)
  - Dizziness [None]
  - Diverticulum [None]
